FAERS Safety Report 7129725-4 (Version None)
Quarter: 2010Q4

REPORT INFORMATION
  Report Type: 
  Country: None (occurrence: None)
  Receive Date: 20101130
  Receipt Date: 20101118
  Transmission Date: 20110411
  Serious: Yes (Death, Life-Threatening)
  Sender: FDA-Public Use
  Company Number: JP-AMGEN-JPNCT2010003621

PATIENT

DRUGS (36)
  1. PANITUMUMAB [Suspect]
     Indication: COLORECTAL CANCER METASTATIC
     Dosage: 6 MG/KG, ONE TIME DOSE
     Route: 041
     Dates: start: 20101018, end: 20101018
  2. OXYCONTIN [Concomitant]
     Indication: CANCER PAIN
     Dosage: 15 MG, TID
     Route: 048
     Dates: start: 20100915, end: 20101027
  3. OXYCONTIN [Concomitant]
     Route: 048
     Dates: start: 20100915, end: 20101027
  4. OXINORM [Concomitant]
     Indication: CANCER PAIN
     Dosage: 3 MG, QD
     Route: 048
     Dates: start: 20100915, end: 20101027
  5. OXINORM [Concomitant]
     Route: 048
     Dates: start: 20100915, end: 20101027
  6. LOXONIN [Concomitant]
     Indication: CANCER PAIN
     Dosage: 60 MG, TID
     Route: 048
     Dates: end: 20101027
  7. LOXONIN [Concomitant]
     Route: 048
     Dates: end: 20101027
  8. OLMETEC [Concomitant]
     Indication: HYPERTENSION
     Dosage: 20 MG, QD
     Route: 048
     Dates: end: 20101027
  9. OLMETEC [Concomitant]
     Route: 048
     Dates: end: 20101027
  10. AMLODIPINE [Concomitant]
     Dosage: 5 MG, QD
     Route: 048
     Dates: end: 20101027
  11. MUCODYNE [Concomitant]
     Indication: PRODUCTIVE COUGH
     Dosage: 500 MG, TID
     Route: 048
     Dates: start: 20101002, end: 20101027
  12. MUCODYNE [Concomitant]
     Route: 048
     Dates: start: 20101002, end: 20101027
  13. MAXIPIME [Concomitant]
     Dosage: UNK UNK, UNK
     Route: 042
     Dates: start: 20101022
  14. ADONA [Concomitant]
     Indication: HAEMOPTYSIS
     Dosage: 3 MG, QD
     Route: 041
     Dates: start: 20101018, end: 20101022
  15. ADONA [Concomitant]
     Route: 041
     Dates: start: 20101018, end: 20101022
  16. TRANEXAMIC ACID [Concomitant]
     Indication: HAEMOPTYSIS
     Dosage: 2 G, QD
     Route: 041
     Dates: start: 20101018, end: 20101022
  17. TRANEXAMIC ACID [Concomitant]
     Route: 041
     Dates: start: 20101018, end: 20101022
  18. PANTOL [Concomitant]
     Indication: CONSTIPATION
     Route: 042
  19. PANTOL [Concomitant]
     Route: 042
  20. INTRALIPID 10% [Concomitant]
     Indication: MALNUTRITION
     Dosage: 200 ML, QD
     Route: 041
     Dates: end: 20101025
  21. INTRALIPID 10% [Concomitant]
     Route: 041
     Dates: end: 20101025
  22. ZOMETA [Concomitant]
     Indication: METASTASES TO BONE
     Route: 041
  23. ZOMETA [Concomitant]
     Route: 041
  24. DEPAS [Concomitant]
     Indication: INSOMNIA
     Dosage: 0.5 MG, QD
     Route: 048
     Dates: end: 20101027
  25. DEPAS [Concomitant]
     Route: 048
     Dates: end: 20101027
  26. MAGMITT [Concomitant]
     Indication: CONSTIPATION
     Route: 048
  27. MAGMITT [Concomitant]
     Route: 048
  28. ALOSENN [Concomitant]
     Indication: CONSTIPATION
     Route: 048
  29. ALOSENN [Concomitant]
     Route: 048
  30. PAXIL [Concomitant]
     Indication: INSOMNIA
     Dosage: 10 MG, QD
     Route: 048
     Dates: end: 20101027
  31. PAXIL [Concomitant]
     Route: 048
     Dates: end: 20101027
  32. TAKEPRON OD TABLETS 30 [Concomitant]
     Indication: PROPHYLAXIS
     Route: 048
     Dates: end: 20101027
  33. ELNEOPA NO.2 [Concomitant]
     Indication: DECREASED APPETITE
     Route: 042
  34. AMLODIN OD [Concomitant]
     Indication: HYPERTENSION
     Route: 048
     Dates: end: 20101027
  35. BISOLVON [Concomitant]
     Indication: PRODUCTIVE COUGH
     Route: 048
     Dates: start: 20101002, end: 20101027
  36. TSUMURA DAIKENTYUTO [Concomitant]
     Indication: CONSTIPATION
     Route: 048
     Dates: end: 20101020

REACTIONS (2)
  - DERMATITIS [None]
  - INTERSTITIAL LUNG DISEASE [None]
